FAERS Safety Report 23628992 (Version 1)
Quarter: 2024Q1

REPORT INFORMATION
  Report Type: Spontaneous
  Country: DE (occurrence: None)
  Receive Date: 20240313
  Receipt Date: 20240313
  Transmission Date: 20240410
  Serious: Yes (Other)
  Sender: FDA-Public Use
  Company Number: 2024A055530

PATIENT
  Sex: Male

DRUGS (1)
  1. DAPAGLIFLOZIN [Suspect]
     Active Substance: DAPAGLIFLOZIN
     Indication: Cardiac failure
     Route: 048
     Dates: start: 20240110, end: 20240304

REACTIONS (3)
  - Blood creatine phosphokinase increased [Recovering/Resolving]
  - Genital infection [Recovering/Resolving]
  - Glomerular filtration rate abnormal [Recovering/Resolving]
